FAERS Safety Report 5760249-2 (Version None)
Quarter: 2008Q2

REPORT INFORMATION
  Report Type: 
  Country: None (occurrence: None)
  Receive Date: 20080602
  Receipt Date: 20080519
  Transmission Date: 20081010
  Serious: Yes (Other)
  Sender: FDA-Public Use
  Company Number: 2008006220

PATIENT
  Sex: Male

DRUGS (1)
  1. LUBRIDERM SKIN NOURISHING WITH OAT EXTRACT (NO ACTIVE INGREDIENT) [Suspect]
     Indication: DRY SKIN
     Dosage: UNSPECIFIED, TOPICAL
     Route: 061

REACTIONS (6)
  - APPLICATION SITE BURN [None]
  - APPLICATION SITE DRYNESS [None]
  - APPLICATION SITE EXFOLIATION [None]
  - APPLICATION SITE PAIN [None]
  - DRY SKIN [None]
  - SWELLING FACE [None]
